FAERS Safety Report 23765388 (Version 1)
Quarter: 2024Q2

REPORT INFORMATION
  Report Type: Spontaneous
  Country: US (occurrence: US)
  Receive Date: 20240420
  Receipt Date: 20240420
  Transmission Date: 20240716
  Serious: No
  Sender: FDA-Public Use
  Company Number: US-SA-SAC20240418001155

PATIENT
  Sex: Male

DRUGS (2)
  1. DUPILUMAB [Suspect]
     Active Substance: DUPILUMAB
     Indication: Dermatitis atopic
     Dosage: FIRST LOADING DOSE
     Route: 058
     Dates: start: 20240307, end: 20240307
  2. DUPILUMAB [Suspect]
     Active Substance: DUPILUMAB
     Dosage: SECOND LOADING DOSE
     Route: 058
     Dates: start: 20240411, end: 20240411

REACTIONS (2)
  - Paraesthesia [Recovered/Resolved]
  - Rash [Recovered/Resolved]

NARRATIVE: CASE EVENT DATE: 20240416
